FAERS Safety Report 5981124-4 (Version None)
Quarter: 2008Q4

REPORT INFORMATION
  Report Type: 
  Country: None (occurrence: None)
  Receive Date: 20081202
  Receipt Date: 20081202
  Transmission Date: 20090506
  Serious: Yes (Other)
  Sender: FDA-Public Use
  Company Number: None

PATIENT
  Age: 40 Year
  Sex: Female
  Weight: 99.7913 kg

DRUGS (1)
  1. BUDEPRION XL 150 MG TEVA [Suspect]
     Indication: DEPRESSION
     Dosage: 3 ONCE IN THE MORNIN PO
     Route: 048
     Dates: start: 20080801, end: 20081127

REACTIONS (2)
  - PRODUCT COUNTERFEIT [None]
  - THERAPEUTIC RESPONSE UNEXPECTED WITH DRUG SUBSTITUTION [None]
